FAERS Safety Report 4957617-5 (Version None)
Quarter: 2006Q1

REPORT INFORMATION
  Report Type: 
  Country: None (occurrence: None)
  Receive Date: 20060330
  Receipt Date: 20041025
  Transmission Date: 20060701
  Serious: Yes (Life-Threatening)
  Sender: FDA-Public Use
  Company Number: JP-SANOFI-SYNTHELABO-F01200403361

PATIENT
  Sex: Female
  Weight: 62 kg

DRUGS (16)
  1. CLOPIDOGREL [Suspect]
     Indication: ACUTE CORONARY SYNDROME
     Dosage: LOADING DOSE OF 300 MG FOLLOWED BY 75 MG/DAY
     Route: 048
     Dates: start: 20041022, end: 20041023
  2. HERBESSOR R [Suspect]
     Indication: ACUTE CORONARY SYNDROME
     Dosage: 100 MG
     Route: 048
     Dates: start: 20041022, end: 20041023
  3. BUFFERIN [Concomitant]
     Indication: ACUTE CORONARY SYNDROME
     Dosage: 81 MG
     Route: 048
     Dates: start: 20041022, end: 20041023
  4. BAYLOTENSIN [Concomitant]
     Indication: HYPERTENSION
     Dosage: 10 MG
     Route: 048
     Dates: end: 20041022
  5. MEVALOTIN [Concomitant]
     Indication: HYPERLIPIDAEMIA
     Dosage: 10 MG
     Route: 048
     Dates: end: 20041022
  6. LASIX [Concomitant]
     Indication: HEPATIC CIRRHOSIS
     Dosage: 20 MG
     Route: 048
     Dates: end: 20041022
  7. ALDACTONE [Concomitant]
     Indication: HEPATIC CIRRHOSIS
     Dosage: 50 MG
     Route: 048
     Dates: end: 20041022
  8. RILMAZAFONE [Concomitant]
     Indication: INSOMNIA
     Dosage: 1 MG
     Route: 048
     Dates: end: 20041022
  9. HEPARIN SODIUM [Concomitant]
     Indication: ACUTE CORONARY SYNDROME
     Dosage: 20 ML/HOUR
     Route: 041
     Dates: start: 20041022, end: 20041023
  10. HEPARIN SODIUM [Concomitant]
     Dosage: 1000 IU
     Route: 022
     Dates: start: 20041023, end: 20041023
  11. HEPARIN SODIUM [Concomitant]
     Dosage: 5000 IU
     Route: 022
     Dates: start: 20041023, end: 20041023
  12. NITROGLYCERIN [Concomitant]
     Indication: ACUTE CORONARY SYNDROME
     Dosage: 0.5 ML/HOUR
     Route: 041
     Dates: start: 20041022, end: 20041023
  13. NITROGLYCERIN [Concomitant]
     Dosage: 1 ML/HOUR
     Route: 041
     Dates: start: 20041023, end: 20041023
  14. NITROGLYCERIN [Concomitant]
     Dosage: 0.5 ML/HOUR
     Route: 041
     Dates: start: 20041023, end: 20041028
  15. NITOROL [Concomitant]
     Dosage: 5 MG
     Route: 022
     Dates: start: 20041023, end: 20041023
  16. NITROPEN [Concomitant]
     Indication: CHEST PAIN
     Dosage: 0.3 MG
     Route: 060
     Dates: start: 20041022, end: 20041022

REACTIONS (2)
  - HYPERKALAEMIA [None]
  - SINUS ARREST [None]
